FAERS Safety Report 25264009 (Version 4)
Quarter: 2025Q3

REPORT INFORMATION
  Report Type: Spontaneous
  Country: US (occurrence: US)
  Receive Date: 20250502
  Receipt Date: 20250802
  Transmission Date: 20251021
  Serious: Yes (Other)
  Sender: ALEXION PHARMACEUTICALS
  Company Number: US-ASTRAZENECA-202504USA026014US

PATIENT
  Sex: Female

DRUGS (1)
  1. FARXIGA [Suspect]
     Active Substance: DAPAGLIFLOZIN PROPANEDIOL
     Route: 065

REACTIONS (20)
  - Keratoconus [Unknown]
  - Diabetes mellitus [Unknown]
  - Gastrointestinal disorder [Unknown]
  - Ketoacidosis [Unknown]
  - Parkinsonism [Unknown]
  - Urinary retention [Unknown]
  - Tremor [Not Recovered/Not Resolved]
  - Hyperhidrosis [Unknown]
  - Heart rate increased [Unknown]
  - Mental disorder [Unknown]
  - Micturition urgency [Not Recovered/Not Resolved]
  - Urinary incontinence [Not Recovered/Not Resolved]
  - Electrolyte imbalance [Not Recovered/Not Resolved]
  - Dyskinesia [Not Recovered/Not Resolved]
  - Hepatic steatosis [Unknown]
  - Nausea [Unknown]
  - Dizziness [Unknown]
  - Injury [Unknown]
  - Blood test abnormal [Not Recovered/Not Resolved]
  - Glycosylated haemoglobin decreased [Not Recovered/Not Resolved]
